FAERS Safety Report 5959771-5 (Version None)
Quarter: 2008Q4

REPORT INFORMATION
  Report Type: 
  Country: None (occurrence: None)
  Receive Date: 20081120
  Receipt Date: 20081118
  Transmission Date: 20090506
  Serious: Yes (Other)
  Sender: FDA-Public Use
  Company Number: B0546974A

PATIENT
  Age: 45 Year
  Sex: Female

DRUGS (1)
  1. NIQUITIN CQ CLEAR 14MG [Suspect]
     Indication: DRUG USE FOR UNKNOWN INDICATION
     Dosage: 14MG PER DAY
     Route: 062

REACTIONS (5)
  - CHILLS [None]
  - COLD SWEAT [None]
  - DISCOMFORT [None]
  - DIZZINESS [None]
  - LOSS OF CONSCIOUSNESS [None]
